FAERS Safety Report 23756176 (Version 3)
Quarter: 2024Q4

REPORT INFORMATION
  Report Type: Spontaneous
  Country: US (occurrence: US)
  Receive Date: 20240418
  Receipt Date: 20241122
  Transmission Date: 20250115
  Serious: Yes (Other)
  Sender: BAYER HEALTHCARE PHARMACEUTICALS INC.
  Company Number: US-BAYER-2024A052692

PATIENT
  Age: 64 Year
  Sex: Female

DRUGS (2)
  1. CLIMARA PRO [Suspect]
     Active Substance: ESTRADIOL\LEVONORGESTREL
     Indication: Hot flush
     Dosage: UNK
     Route: 062
     Dates: start: 202301
  2. CLIMARA PRO [Suspect]
     Active Substance: ESTRADIOL\LEVONORGESTREL
     Indication: Sleep disorder

REACTIONS (7)
  - Application site reaction [None]
  - Application site inflammation [None]
  - Genital haemorrhage [None]
  - Skin irritation [None]
  - Vaginal haemorrhage [None]
  - Application site inflammation [None]
  - Intermenstrual bleeding [None]

NARRATIVE: CASE EVENT DATE: 20230201
